FAERS Safety Report 7429798-5 (Version None)
Quarter: 2011Q2

REPORT INFORMATION
  Report Type: 
  Country: None (occurrence: None)
  Receive Date: 20110421
  Receipt Date: 20110412
  Transmission Date: 20111010
  Serious: Yes (Hospitalization)
  Sender: FDA-Public Use
  Company Number: US-MERCK-1006USA02448

PATIENT
  Age: 65 Year
  Sex: Female
  Weight: 65 kg

DRUGS (3)
  1. FOSAMAX PLUS D [Suspect]
     Indication: OSTEOPENIA
     Route: 048
     Dates: start: 20070301, end: 20081018
  2. FOSAMAX [Suspect]
     Route: 048
     Dates: start: 20000406, end: 20010101
  3. FOSAMAX [Suspect]
     Indication: OSTEOPENIA
     Route: 048
     Dates: start: 20010703, end: 20070304

REACTIONS (13)
  - FEMUR FRACTURE [None]
  - OEDEMA [None]
  - PAIN IN EXTREMITY [None]
  - ADVERSE EVENT [None]
  - OVARIAN CYST [None]
  - CARDIOVASCULAR DISORDER [None]
  - FALL [None]
  - FRACTURE DELAYED UNION [None]
  - BRONCHITIS [None]
  - ARTHRALGIA [None]
  - MUSCLE SPASMS [None]
  - MUSCULOSKELETAL PAIN [None]
  - ROTATOR CUFF SYNDROME [None]
